FAERS Safety Report 6578789-5 (Version None)
Quarter: 2010Q1

REPORT INFORMATION
  Report Type: 
  Country: None (occurrence: None)
  Receive Date: 20100202
  Receipt Date: 20100120
  Transmission Date: 20100710
  Serious: Yes (Hospitalization)
  Sender: FDA-Public Use
  Company Number: 220073J09GBR

PATIENT
  Age: 1 Year
  Sex: Male

DRUGS (1)
  1. SAIZEN [Suspect]
     Indication: OFF LABEL USE
     Dosage: 0.3 MG
     Dates: start: 20090512

REACTIONS (8)
  - ABASIA [None]
  - ARTHROPATHY [None]
  - CRYPTORCHISM [None]
  - DYSPNOEA [None]
  - GENITAL CANDIDIASIS [None]
  - LOWER RESPIRATORY TRACT INFECTION [None]
  - NASOPHARYNGITIS [None]
  - VIRAL INFECTION [None]
